FAERS Safety Report 6596454-5 (Version None)
Quarter: 2010Q1

REPORT INFORMATION
  Report Type: 
  Country: None (occurrence: None)
  Receive Date: 20100223
  Receipt Date: 20100215
  Transmission Date: 20100710
  Serious: Yes (Hospitalization)
  Sender: FDA-Public Use
  Company Number: JP-ELI_LILLY_AND_COMPANY-JP201002004873

PATIENT
  Age: 60 Year
  Sex: Female

DRUGS (6)
  1. EXENATIDE [Suspect]
     Indication: TYPE 2 DIABETES MELLITUS
     Dosage: 2 MG, WEEKLY (1/W)
     Route: 058
     Dates: start: 20091020
  2. GLIMICRON [Concomitant]
     Indication: TYPE 2 DIABETES MELLITUS
     Dosage: 40 MG, DAILY (1/D)
     Route: 048
  3. MELBIN [Concomitant]
     Indication: TYPE 2 DIABETES MELLITUS
     Dosage: 750 MG, UNK
     Route: 048
  4. MICARDIS [Concomitant]
     Dosage: 40 MG, UNK
     Route: 048
  5. LIPITOR [Concomitant]
     Dosage: 10 MG, UNK
     Route: 048
  6. ASPIRIN [Concomitant]
     Dosage: 100 MG, UNK
     Route: 048
     Dates: start: 20090401

REACTIONS (2)
  - FAECES DISCOLOURED [None]
  - MELAENA [None]
